FAERS Safety Report 4842882-5 (Version None)
Quarter: 2005Q4

REPORT INFORMATION
  Report Type: 
  Country: None (occurrence: None)
  Receive Date: 20051201
  Receipt Date: 20050905
  Transmission Date: 20060501
  Serious: Yes (Other)
  Sender: FDA-Public Use
  Company Number: PHNR2005AU01350

PATIENT
  Age: 82 Year
  Sex: Male

DRUGS (5)
  1. DESFERAL [Suspect]
     Indication: MYELODYSPLASTIC SYNDROME
     Dosage: 2 G, DAY
     Dates: start: 20050329
  2. DESFERAL [Suspect]
     Dosage: UNK, UNK
     Dates: start: 20050101, end: 20050823
  3. FRUSEMIDE [Concomitant]
  4. LISINOPRIL [Concomitant]
  5. SIMVASTATIN [Concomitant]

REACTIONS (7)
  - INJECTION SITE INFLAMMATION [None]
  - INJECTION SITE PAIN [None]
  - INJECTION SITE REACTION [None]
  - METHICILLIN-RESISTANT STAPHYLOCOCCAL AUREUS TEST POSITIVE [None]
  - NAUSEA [None]
  - SUBCUTANEOUS ABSCESS [None]
  - WOUND ABSCESS [None]
